FAERS Safety Report 15520132 (Version 1)
Quarter: 2018Q4

REPORT INFORMATION
  Report Type: Spontaneous
  Country: JP (occurrence: JP)
  Receive Date: 20181017
  Receipt Date: 20181017
  Transmission Date: 20190205
  Serious: Yes (Other)
  Sender: FDA-Public Use
  Company Number: JP-ALLERGAN-1849553US

PATIENT
  Age: 74 Year
  Sex: Female

DRUGS (2)
  1. LINACLOTIDE - BP [Suspect]
     Active Substance: LINACLOTIDE
     Indication: PRODUCT USED FOR UNKNOWN INDICATION
     Dosage: 0.25 MG, QD
     Route: 048
     Dates: start: 20180818
  2. POTASSIUM RAISING DRUG [Concomitant]
     Indication: BLOOD POTASSIUM DECREASED
     Dosage: UNK
     Route: 065

REACTIONS (2)
  - Hypokalaemia [Unknown]
  - Prescribed underdose [Unknown]

NARRATIVE: CASE EVENT DATE: 20180818
